FAERS Safety Report 9316404 (Version 1)
Quarter: 2013Q2

REPORT INFORMATION
  Report Type: Spontaneous
  Country: CA (occurrence: CA)
  Receive Date: 20130530
  Receipt Date: 20130530
  Transmission Date: 20140414
  Serious: Yes (Death, Hospitalization)
  Sender: FDA-Public Use
  Company Number: CA-TEVA-408397USA

PATIENT
  Age: 60 Year
  Sex: Male
  Weight: 72.19 kg

DRUGS (4)
  1. CIPROFLOXACIN [Suspect]
     Dosage: 500 MILLIGRAM DAILY;
     Route: 048
  2. FENTANYL [Interacting]
     Dosage: 1200 MICROGRAM DAILY;
     Route: 065
  3. CYMBALTA [Interacting]
     Dosage: 30 MILLIGRAM DAILY;
     Route: 048
  4. CYMBALTA [Interacting]
     Dosage: 60 MILLIGRAM DAILY; DELAYED RELEASE
     Route: 048

REACTIONS (14)
  - Aggression [Fatal]
  - Confusional state [Fatal]
  - Drug interaction [Fatal]
  - Gastrointestinal perforation [Fatal]
  - Hyperhidrosis [Fatal]
  - Hypotension [Fatal]
  - Hypoventilation [Fatal]
  - Loss of consciousness [Fatal]
  - Muscle rigidity [Fatal]
  - Nausea [Fatal]
  - Oxygen saturation decreased [Fatal]
  - Serotonin syndrome [Fatal]
  - Somnolence [Fatal]
  - Tachycardia [Fatal]
